FAERS Safety Report 9570847 (Version 1)
Quarter: 2013Q4

REPORT INFORMATION
  Report Type: Spontaneous
  Country: US (occurrence: US)
  Receive Date: 20131001
  Receipt Date: 20131001
  Transmission Date: 20140711
  Serious: Yes (Hospitalization)
  Sender: FDA-Public Use
  Company Number: US-SUN PHARMACEUTICAL INDUSTRIES LTD-2013SUN04751

PATIENT
  Age: 50 Year
  Sex: Female

DRUGS (3)
  1. LAMOTRIGINE TABLETS 25MG [Suspect]
     Indication: MAJOR DEPRESSION
     Route: 065
  2. CYCLOBENZAPRINE HYDROCHLORIDE [Suspect]
     Indication: ANALGESIC THERAPY
     Dosage: 10 MG, TID
     Route: 065
  3. ESCITALOPRAM [Concomitant]

REACTIONS (2)
  - Drug interaction [Unknown]
  - Drug reaction with eosinophilia and systemic symptoms [Recovering/Resolving]
